FAERS Safety Report 6454314-4 (Version None)
Quarter: 2009Q4

REPORT INFORMATION
  Report Type: 
  Country: None (occurrence: None)
  Receive Date: 20091124
  Receipt Date: 20091110
  Transmission Date: 20100525
  Serious: Yes (Hospitalization, Disabling)
  Sender: FDA-Public Use
  Company Number: US-ROCHE-600763

PATIENT
  Sex: Female
  Weight: 103 kg

DRUGS (6)
  1. PEG-INTERFERON A-2A (RO 25-8310) [Suspect]
     Indication: HEPATITIS C
     Dosage: PERMANENTLY DISCONTINUED:03 OCTOBER 2008.
     Route: 058
     Dates: start: 20081003, end: 20081003
  2. PEG-INTERFERON A-2A (RO 25-8310) [Suspect]
     Route: 058
     Dates: start: 20091003
  3. RIBAVIRIN [Suspect]
     Indication: HEPATITIS C
     Dosage: REPORTED FORM: PILLS. LAST DOSE PRIOR TO SAE: 08 OCTOBER 2008. PERMANENTLY DISCONTINUED:09 OCT 2008.
     Route: 048
     Dates: start: 20081003, end: 20081009
  4. RIBAVIRIN [Suspect]
     Route: 048
     Dates: start: 20091003
  5. PROZAC [Concomitant]
     Dates: start: 20080918
  6. KLONOPIN [Concomitant]
     Dates: start: 20080918

REACTIONS (1)
  - FEMUR FRACTURE [None]
